FAERS Safety Report 9556785 (Version 1)
Quarter: 2013Q3

REPORT INFORMATION
  Report Type: Spontaneous
  Country: PR (occurrence: None)
  Receive Date: 20130924
  Receipt Date: 20130924
  Transmission Date: 20140515
  Serious: Yes (Death)
  Sender: FDA-Public Use
  Company Number: MC201300436

PATIENT
  Age: 87 Year
  Sex: Male
  Weight: 93.9 kg

DRUGS (3)
  1. ANGIOMAX [Suspect]
     Indication: PERCUTANEOUS CORONARY INTERVENTION
     Dosage: 14.5 ML (0.77 MG/KG) BOLUS
     Route: 042
     Dates: start: 20130813, end: 20130813
  2. PLAVIX (CLOPIDOGREL BISULFATE) [Concomitant]
  3. ASPIRIN (ASPIRIN) [Concomitant]

REACTIONS (6)
  - Cardiac arrest [None]
  - Hypotension [None]
  - Coronary artery thrombosis [None]
  - Procedural complication [None]
  - Coronary artery dissection [None]
  - Coagulation time shortened [None]
